FAERS Safety Report 6756983-8 (Version None)
Quarter: 2010Q2

REPORT INFORMATION
  Report Type: 
  Country: None (occurrence: None)
  Receive Date: 20100604
  Receipt Date: 20100526
  Transmission Date: 20101027
  Serious: Yes (Death)
  Sender: FDA-Public Use
  Company Number: PE-ABBOTT-10P-127-0647056-00

PATIENT
  Sex: Female
  Weight: 43.5 kg

DRUGS (1)
  1. ZEMPLAR [Suspect]
     Indication: HYPERPARATHYROIDISM SECONDARY
     Dosage: 22.4 MCG 3 VIG
     Route: 042
     Dates: start: 20100401, end: 20100506

REACTIONS (1)
  - GASTROINTESTINAL HAEMORRHAGE [None]
